FAERS Safety Report 20174593 (Version 4)
Quarter: 2022Q1

REPORT INFORMATION
  Report Type: Spontaneous
  Country: US (occurrence: US)
  Receive Date: 20211213
  Receipt Date: 20220328
  Transmission Date: 20220423
  Serious: Yes (Other)
  Sender: FDA-Public Use
  Company Number: US-LUPIN PHARMACEUTICALS INC.-2021-24237

PATIENT
  Sex: Female

DRUGS (1)
  1. ALBUTEROL SULFATE [Suspect]
     Active Substance: ALBUTEROL SULFATE
     Indication: Asthma
     Dosage: UNK

REACTIONS (6)
  - Choking [Unknown]
  - Dyspnoea [Unknown]
  - Device ineffective [Unknown]
  - Incorrect dose administered by device [Unknown]
  - Product substitution issue [Unknown]
  - Device delivery system issue [Unknown]
